FAERS Safety Report 14260429 (Version 7)
Quarter: 2018Q2

REPORT INFORMATION
  Report Type: Report from Study
  Country: US (occurrence: US)
  Receive Date: 20171207
  Receipt Date: 20180510
  Transmission Date: 20180711
  Serious: Yes (Hospitalization, Other)
  Sender: FDA-Public Use
  Company Number: US-ACTELION-A-US2017-157222

PATIENT
  Age: 70 Year
  Sex: Female
  Weight: 53.52 kg

DRUGS (6)
  1. UPTRAVI [Suspect]
     Active Substance: SELEXIPAG
     Indication: PULMONARY ARTERIAL HYPERTENSION
     Dosage: 200 MCG, BID
     Route: 048
  2. UPTRAVI [Suspect]
     Active Substance: SELEXIPAG
     Dosage: 800 MCG, BID
     Route: 048
  3. ELIQUIS [Concomitant]
     Active Substance: APIXABAN
  4. OPSUMIT [Suspect]
     Active Substance: MACITENTAN
     Indication: PULMONARY ARTERIAL HYPERTENSION
     Dosage: 10 MG, QD
     Route: 048
  5. UPTRAVI [Suspect]
     Active Substance: SELEXIPAG
     Dosage: UNK
     Route: 048
  6. ADCIRCA [Concomitant]
     Active Substance: TADALAFIL

REACTIONS (19)
  - Drug withdrawal syndrome [Unknown]
  - Pain in extremity [Unknown]
  - Seizure [Unknown]
  - Dyspnoea [Unknown]
  - Muscular weakness [Unknown]
  - Peripheral swelling [Unknown]
  - Headache [Unknown]
  - Neuropathy peripheral [Unknown]
  - Anxiety [Unknown]
  - Toothache [Unknown]
  - Pain in jaw [Unknown]
  - Drug intolerance [Unknown]
  - Breast cancer [Unknown]
  - Influenza [Not Recovered/Not Resolved]
  - Drug dose omission [Unknown]
  - Hypoaesthesia [Unknown]
  - Migraine [Unknown]
  - Mastectomy [Unknown]
  - Life expectancy shortened [Unknown]
